FAERS Safety Report 8297182-0 (Version None)
Quarter: 2012Q2

REPORT INFORMATION
  Report Type: 
  Country: None (occurrence: None)
  Receive Date: 20120419
  Receipt Date: 20120417
  Transmission Date: 20120825
  Serious: No
  Sender: FDA-Public Use
  Company Number: US-PFIZER INC-2012095228

PATIENT
  Sex: Female
  Weight: 48.52 kg

DRUGS (3)
  1. LANOXIN [Concomitant]
     Indication: BLOOD PRESSURE ABNORMAL
     Dosage: 0.125 MG, DAILY
     Route: 048
  2. ZIAC [Concomitant]
     Indication: BLOOD PRESSURE ABNORMAL
     Dosage: 5/6.25 MG, DAILY
     Route: 048
  3. IBUPROFEN (ADVIL) [Suspect]
     Indication: ARTHRALGIA
     Dosage: TWO TABLETS, 200 MG ONCE
     Route: 048
     Dates: start: 20120416

REACTIONS (1)
  - EPISTAXIS [None]
